FAERS Safety Report 10030498 (Version 2)
Quarter: 2014Q1

REPORT INFORMATION
  Report Type: Spontaneous
  Country: US (occurrence: US)
  Receive Date: 20140323
  Receipt Date: 20140323
  Transmission Date: 20141002
  Serious: No
  Sender: FDA-Public Use
  Company Number: US-ALLERGAN-1403502US

PATIENT
  Age: 47 Year
  Sex: Female

DRUGS (1)
  1. LATISSE 0.03% [Suspect]
     Indication: GROWTH OF EYELASHES
     Dosage: UNK UNK, QPM
     Route: 061
     Dates: start: 201401, end: 201402

REACTIONS (3)
  - Skin discolouration [Recovered/Resolved]
  - Eyelids pruritus [Recovered/Resolved]
  - Eyelid pain [Recovered/Resolved]
